FAERS Safety Report 13425412 (Version 1)
Quarter: 2017Q2

REPORT INFORMATION
  Report Type: Spontaneous
  Country: US (occurrence: US)
  Receive Date: 20170411
  Receipt Date: 20170411
  Transmission Date: 20170830
  Serious: No
  Sender: FDA-Public Use
  Company Number: US-TEVA-731533ACC

PATIENT
  Sex: Female
  Weight: 69.92 kg

DRUGS (1)
  1. OMEGA-3-ACID ETHYL ESTERS CAPSULES, USP [Suspect]
     Active Substance: OMEGA-3-ACID ETHYL ESTERS
     Indication: BLOOD TRIGLYCERIDES
     Dosage: 4 DOSAGE FORMS DAILY;

REACTIONS (1)
  - Medication residue present [Not Recovered/Not Resolved]
